FAERS Safety Report 8005446-0 (Version None)
Quarter: 2011Q4

REPORT INFORMATION
  Report Type: 
  Country: None (occurrence: None)
  Receive Date: 20111223
  Receipt Date: 20111220
  Transmission Date: 20120403
  Serious: Yes (Death, Life-Threatening, Disabling)
  Sender: FDA-Public Use
  Company Number: PL-JNJFOC-20111209525

PATIENT
  Sex: Male
  Weight: 75 kg

DRUGS (3)
  1. ABIRATERONE ACETATE [Suspect]
     Indication: PROSTATE CANCER METASTATIC
     Route: 048
     Dates: start: 20110629, end: 20111205
  2. PREDNISONE TAB [Suspect]
     Indication: PROSTATE CANCER METASTATIC
     Route: 065
     Dates: start: 20110629, end: 20111205
  3. ABIRATERONE ACETATE [Suspect]
     Route: 048

REACTIONS (4)
  - DEHYDRATION [None]
  - DECREASED APPETITE [None]
  - URINARY TRACT INFECTION [None]
  - VOMITING [None]
